FAERS Safety Report 12183744 (Version 2)
Quarter: 2016Q2

REPORT INFORMATION
  Report Type: Report from Study
  Country: US (occurrence: US)
  Receive Date: 20160316
  Receipt Date: 20160415
  Transmission Date: 20160815
  Serious: Yes (Hospitalization)
  Sender: FDA-Public Use
  Company Number: US-VERTEX PHARMACEUTICALS-2016-001652

PATIENT
  Sex: Female

DRUGS (11)
  1. VANCOCIN HCL [Concomitant]
     Dosage: 750MG 250ML 250 ML/HR, TID
     Route: 042
  2. ORKAMBI [Suspect]
     Active Substance: IVACAFTOR\LUMACAFTOR
     Indication: CYSTIC FIBROSIS
     Dosage: 200/125 MG, 2 DF, BID
     Route: 048
     Dates: start: 20160128, end: 2016
  3. LANTUS [Concomitant]
     Active Substance: INSULIN GLARGINE
  4. GLUCAGON. [Concomitant]
     Active Substance: GLUCAGON
     Dosage: 1 ML, PRN, LOW BLOOD SUGAR
     Route: 058
  5. LISPRO [Concomitant]
     Active Substance: INSULIN LISPRO
  6. HUMALOG [Concomitant]
     Active Substance: INSULIN LISPRO
     Dosage: 0.05 ML, TID, MEALS
     Route: 058
  7. AQUADEKS [Concomitant]
     Active Substance: MINERALS\VITAMINS
     Dosage: 1 DF, QD
     Route: 048
  8. BENADRYL [Concomitant]
     Active Substance: DIPHENHYDRAMINE HYDROCHLORIDE
     Dosage: 2 DF
     Route: 042
  9. ORKAMBI [Suspect]
     Active Substance: IVACAFTOR\LUMACAFTOR
     Dosage: 200/125 MG, 2 DF, BID
     Route: 048
     Dates: start: 2016
  10. ZENPEP [Concomitant]
     Active Substance: PANCRELIPASE AMYLASE\PANCRELIPASE LIPASE\PANCRELIPASE PROTEASE
     Dosage: 4 CAP, TID, MEAL
     Route: 048
  11. PULMOZYME [Concomitant]
     Active Substance: DORNASE ALFA
     Dosage: 2.5 ML, BID
     Route: 055

REACTIONS (2)
  - Infective pulmonary exacerbation of cystic fibrosis [Unknown]
  - Treatment noncompliance [Unknown]

NARRATIVE: CASE EVENT DATE: 2016
